FAERS Safety Report 9830464 (Version 2)
Quarter: 2014Q1

REPORT INFORMATION
  Report Type: Spontaneous
  Country: US (occurrence: US)
  Receive Date: 20140120
  Receipt Date: 20140120
  Transmission Date: 20141002
  Serious: Yes (Hospitalization, Disabling, Other)
  Sender: FDA-Public Use
  Company Number: US-009507513-1108USA01138

PATIENT
  Sex: Female

DRUGS (2)
  1. FOSAMAX [Suspect]
     Dosage: 70 MG, UNK
     Route: 048
     Dates: start: 20090121, end: 20100108
  2. FOSAMAX [Suspect]
     Dosage: 70 MG, QW
     Route: 048
     Dates: end: 2009

REACTIONS (47)
  - Femur fracture [Not Recovered/Not Resolved]
  - Pulmonary embolism [Unknown]
  - Myocardial infarction [Unknown]
  - Knee arthroplasty [Unknown]
  - Fall [Unknown]
  - Transient ischaemic attack [Unknown]
  - Atrial thrombosis [Unknown]
  - Arteriosclerosis coronary artery [Not Recovered/Not Resolved]
  - Haemorrhagic anaemia [Recovered/Resolved]
  - Arthropathy [Not Recovered/Not Resolved]
  - Wound secretion [Recovered/Resolved]
  - Haemarthrosis [Recovered/Resolved]
  - Hypertension [Unknown]
  - Hyperlipidaemia [Unknown]
  - Type 2 diabetes mellitus [Unknown]
  - Bronchitis [Recovering/Resolving]
  - Deep vein thrombosis [Unknown]
  - Vulvovaginal candidiasis [Unknown]
  - Urinary incontinence [Not Recovered/Not Resolved]
  - Ischaemic cardiomyopathy [Unknown]
  - Aortic stenosis [Unknown]
  - Aortic valve incompetence [Not Recovered/Not Resolved]
  - Mitral valve incompetence [Unknown]
  - Pulmonary hypertension [Unknown]
  - Carotid artery stenosis [Unknown]
  - Palpitations [Unknown]
  - Dysthymic disorder [Unknown]
  - Burns second degree [Unknown]
  - Pollakiuria [Unknown]
  - Peripheral arterial occlusive disease [Unknown]
  - Vitamin D deficiency [Unknown]
  - Coronary artery stenosis [Unknown]
  - Osteopenia [Unknown]
  - Cardiac murmur [Unknown]
  - Macular degeneration [Unknown]
  - Chronic obstructive pulmonary disease [Unknown]
  - Osteoporosis [Unknown]
  - Hypercholesterolaemia [Unknown]
  - Hyperglycaemia [Unknown]
  - Obesity [Unknown]
  - Musculoskeletal pain [Unknown]
  - Dizziness [Unknown]
  - Arthralgia [Unknown]
  - Neck pain [Unknown]
  - Headache [Unknown]
  - Oedema peripheral [Not Recovered/Not Resolved]
  - Gastrooesophageal reflux disease [Unknown]
